FAERS Safety Report 16150869 (Version 1)
Quarter: 2019Q2

REPORT INFORMATION
  Report Type: Spontaneous
  Country: DE (occurrence: DE)
  Receive Date: 20190403
  Receipt Date: 20190403
  Transmission Date: 20190711
  Serious: Yes (Other)
  Sender: FDA-Public Use
  Company Number: PHHY2019DE071319

PATIENT
  Sex: Female

DRUGS (2)
  1. DIOVAN [Suspect]
     Active Substance: VALSARTAN
     Indication: PRODUCT USED FOR UNKNOWN INDICATION
     Dosage: 80 MG, UNK (1 DF QD  MORNING + 0.5 DF QD EVENING)
     Route: 065
     Dates: start: 201807
  2. VALSARTAN HEXAL [Suspect]
     Active Substance: VALSARTAN
     Indication: PRODUCT USED FOR UNKNOWN INDICATION
     Dosage: 80 MG, UNK
     Route: 065
     Dates: start: 2016, end: 201807

REACTIONS (7)
  - Muscle disorder [Unknown]
  - Tinnitus [Unknown]
  - Blood pressure increased [Unknown]
  - Heart rate increased [Unknown]
  - Muscle spasms [Unknown]
  - Respiratory disorder [Unknown]
  - Wrong technique in product usage process [Unknown]
